FAERS Safety Report 19503404 (Version 2)
Quarter: 2022Q2

REPORT INFORMATION
  Report Type: Spontaneous
  Country: US (occurrence: None)
  Receive Date: 20210707
  Receipt Date: 20220621
  Transmission Date: 20220721
  Serious: No
  Sender: FDA-Public Use
  Company Number: US-ROCHE-2816471

PATIENT
  Age: 74 Year
  Sex: Male
  Weight: 87.3 kg

DRUGS (1)
  1. CELLCEPT [Suspect]
     Active Substance: MYCOPHENOLATE MOFETIL
     Indication: Interstitial lung disease
     Route: 048
     Dates: start: 202102

REACTIONS (3)
  - Off label use [Unknown]
  - Diarrhoea [Not Recovered/Not Resolved]
  - Oral herpes [Unknown]

NARRATIVE: CASE EVENT DATE: 20210201
